FAERS Safety Report 5025520-0 (Version None)
Quarter: 2006Q2

REPORT INFORMATION
  Report Type: 
  Country: None (occurrence: None)
  Receive Date: 20060607
  Receipt Date: 20060602
  Transmission Date: 20061013
  Serious: Yes (Life-Threatening, Hospitalization)
  Sender: FDA-Public Use
  Company Number: 200610199BFR

PATIENT
  Age: 70 Year
  Sex: Male
  Weight: 66 kg

DRUGS (5)
  1. SORAFENIB [Suspect]
     Indication: METASTATIC RENAL CELL CARCINOMA
     Dosage: 400 MG, BID, ORAL
     Route: 048
     Dates: start: 20050722, end: 20060123
  2. DURAGESIC-100 [Concomitant]
  3. LEVOTHYROX [Concomitant]
  4. TRIATEC [Concomitant]
  5. PARACETAMOL [Concomitant]

REACTIONS (3)
  - ANAEMIA [None]
  - DYSPNOEA [None]
  - PLEURAL EFFUSION [None]
